FAERS Safety Report 10056186 (Version 9)
Quarter: 2014Q4

REPORT INFORMATION
  Report Type: Report from Study
  Country: US (occurrence: US)
  Receive Date: 20140403
  Receipt Date: 20141010
  Transmission Date: 20150528
  Serious: Yes (Death, Life-Threatening, Hospitalization, Other)
  Sender: FDA-Public Use
  Company Number: US-ALEXION PHARMACEUTICALS INC.-A201401014

PATIENT

DRUGS (3)
  1. ANTIBIOTICS [Concomitant]
     Active Substance: UNSPECIFIED INGREDIENT
     Indication: INFECTION
     Route: 042
  2. EXJADE [Concomitant]
     Active Substance: DEFERASIROX
     Indication: PRODUCT USED FOR UNKNOWN INDICATION
     Dosage: 500 MG, QD
     Route: 048
     Dates: start: 20130401
  3. SOLIRIS [Suspect]
     Active Substance: ECULIZUMAB
     Indication: PAROXYSMAL NOCTURNAL HAEMOGLOBINURIA
     Dosage: 900 MG, Q2W
     Route: 042
     Dates: start: 20090903

REACTIONS (19)
  - Skin disorder [Not Recovered/Not Resolved]
  - Knee operation [Unknown]
  - Blood count abnormal [Not Recovered/Not Resolved]
  - Proteus infection [Not Recovered/Not Resolved]
  - Pancytopenia [Not Recovered/Not Resolved]
  - Death [Fatal]
  - Unevaluable event [Unknown]
  - Drug dose omission [Unknown]
  - Type 1 diabetes mellitus [Unknown]
  - Chromaturia [Not Recovered/Not Resolved]
  - Osteonecrosis [Unknown]
  - Platelet count abnormal [Unknown]
  - Mental impairment [Unknown]
  - Thrombocytopenia [Unknown]
  - Infection [Unknown]
  - Asthenia [Unknown]
  - Musculoskeletal pain [Unknown]
  - Pain [Not Recovered/Not Resolved]
  - Wound closure [Not Recovered/Not Resolved]

NARRATIVE: CASE EVENT DATE: 20110321
